FAERS Safety Report 25273585 (Version 1)
Quarter: 2025Q2

REPORT INFORMATION
  Report Type: Report from Study
  Country: DE (occurrence: DE)
  Receive Date: 20250506
  Receipt Date: 20250506
  Transmission Date: 20250717
  Serious: Yes (Other)
  Sender: ALEXION PHARMACEUTICALS
  Company Number: DE-ASTRAZENECA-202504GLO026418DE

PATIENT
  Age: 56 Year
  Weight: 81 kg

DRUGS (10)
  1. DURVALUMAB [Suspect]
     Active Substance: DURVALUMAB
     Indication: Hepatocellular carcinoma
  2. DURVALUMAB [Suspect]
     Active Substance: DURVALUMAB
  3. GEMCITABINE [Suspect]
     Active Substance: GEMCITABINE
     Indication: Hepatocellular carcinoma
     Route: 065
  4. GEMCITABINE [Suspect]
     Active Substance: GEMCITABINE
     Route: 065
  5. GEMCITABINE [Suspect]
     Active Substance: GEMCITABINE
     Route: 065
  6. GEMCITABINE [Suspect]
     Active Substance: GEMCITABINE
     Route: 065
  7. CISPLATIN [Suspect]
     Active Substance: CISPLATIN
     Indication: Hepatocellular carcinoma
     Route: 065
  8. CISPLATIN [Suspect]
     Active Substance: CISPLATIN
     Route: 065
  9. CISPLATIN [Suspect]
     Active Substance: CISPLATIN
     Route: 065
  10. CISPLATIN [Suspect]
     Active Substance: CISPLATIN
     Route: 065

REACTIONS (3)
  - Polyneuropathy [Not Recovered/Not Resolved]
  - Fatigue [Recovered/Resolved]
  - Respiratory tract infection [Recovered/Resolved]
